FAERS Safety Report 8091713-1 (Version None)
Quarter: 2012Q1

REPORT INFORMATION
  Report Type: 
  Country: None (occurrence: None)
  Receive Date: 20120131
  Receipt Date: 20120127
  Transmission Date: 20120608
  Serious: Yes (Hospitalization)
  Sender: FDA-Public Use
  Company Number: IT-BAYER-2012-009130

PATIENT

DRUGS (4)
  1. URSODIOL [Concomitant]
     Dosage: DAILY DOSE 900 MG
     Route: 048
  2. POTASSIUM CANRENOATE [Concomitant]
     Dosage: DAILY DOSE 100 MG
     Route: 048
  3. FUROSEMIDE [Concomitant]
     Dosage: DAILY DOSE 7 MG
     Route: 048
  4. NEXAVAR [Suspect]
     Indication: HEPATIC NEOPLASM MALIGNANT
     Dosage: DAILY DOSE 800 MG
     Route: 048
     Dates: start: 20100422, end: 20100525

REACTIONS (3)
  - BLISTER [None]
  - EXFOLIATIVE RASH [None]
  - SKIN ULCER [None]
